FAERS Safety Report 5724739-0 (Version None)
Quarter: 2008Q2

REPORT INFORMATION
  Report Type: 
  Country: None (occurrence: None)
  Receive Date: 20080501
  Receipt Date: 20080428
  Transmission Date: 20081010
  Serious: Yes (Life-Threatening, Hospitalization)
  Sender: FDA-Public Use
  Company Number: PHHY2008BR05463

PATIENT
  Age: 40 Year
  Sex: Female
  Weight: 90 kg

DRUGS (8)
  1. FORASEQ [Suspect]
     Indication: BRONCHOPNEUMONIA
     Dosage: 12/400MCG, BID
     Dates: start: 20080314
  2. AZITHROMYCIN [Concomitant]
     Dosage: 1 DF, QD
  3. ALBUTEROL [Concomitant]
     Dosage: 5 ML, TID
  4. FLUIMUCIL [Concomitant]
     Dosage: 200 MG, TID
  5. FLUIMUCIL [Concomitant]
     Dosage: 2 ML, TID
     Dates: start: 20080303
  6. FLUIMUCIL [Concomitant]
     Dosage: 10 ML, TID
  7. AMINOPHYLLINE [Concomitant]
     Dosage: 1 DF, QID
  8. METICORTEN [Concomitant]
     Dosage: 20 MG, BID
     Dates: start: 20080311

REACTIONS (8)
  - ALLERGY TEST [None]
  - COUGH [None]
  - DYSPNOEA [None]
  - HEART RATE INCREASED [None]
  - INSOMNIA [None]
  - RESPIRATORY ARREST [None]
  - SPEECH DISORDER [None]
  - STATUS ASTHMATICUS [None]
